FAERS Safety Report 8232960-5 (Version None)
Quarter: 2012Q1

REPORT INFORMATION
  Report Type: 
  Country: None (occurrence: None)
  Receive Date: 20120325
  Receipt Date: 20120314
  Transmission Date: 20120608
  Serious: Yes (Other)
  Sender: FDA-Public Use
  Company Number: DE-BRISTOL-MYERS SQUIBB COMPANY-16455743

PATIENT

DRUGS (1)
  1. BARACLUDE [Suspect]
     Indication: HEPATITIS B
     Dosage: BARACLUDE FILM-COATED TABLETS IN MRNG
     Dates: end: 20120308

REACTIONS (2)
  - AORTIC VALVE DISEASE [None]
  - DRUG DOSE OMISSION [None]
